FAERS Safety Report 4396072-3 (Version None)
Quarter: 2004Q3

REPORT INFORMATION
  Report Type: 
  Country: None (occurrence: None)
  Receive Date: 20040708
  Receipt Date: 20040624
  Transmission Date: 20050211
  Serious: Yes (Hospitalization, Disabling)
  Sender: FDA-Public Use
  Company Number: 2003-BP-06680BP

PATIENT
  Age: 64 Year
  Sex: Male
  Weight: 67.1 kg

DRUGS (16)
  1. MICARDIS [Suspect]
     Indication: CARDIOVASCULAR DISORDER
     Dosage: PO
     Route: 048
     Dates: start: 20030404
  2. MICARDIS [Suspect]
     Indication: CEREBROVASCULAR ACCIDENT PROPHYLAXIS
     Dosage: PO
     Route: 048
     Dates: start: 20030404
  3. MICARDIS [Suspect]
     Indication: MYOCARDIAL INFARCTION
     Dosage: PO
     Route: 048
     Dates: start: 20030404
  4. MICARDIS [Suspect]
     Indication: PROPHYLAXIS
     Dosage: PO
     Route: 048
     Dates: start: 20030404
  5. RAMIPRIL [Suspect]
     Indication: CARDIOVASCULAR DISORDER
     Dosage: PO
     Route: 048
     Dates: start: 20030404
  6. RAMIPRIL [Suspect]
     Indication: CEREBROVASCULAR ACCIDENT PROPHYLAXIS
     Dosage: PO
     Route: 048
     Dates: start: 20030404
  7. RAMIPRIL [Suspect]
     Indication: MYOCARDIAL INFARCTION
     Dosage: PO
     Route: 048
     Dates: start: 20030404
  8. RAMIPRIL [Suspect]
     Indication: PROPHYLAXIS
     Dosage: PO
     Route: 048
     Dates: start: 20030404
  9. ASPIRIN [Concomitant]
  10. SILDENAFIL [Concomitant]
  11. SIMVASTATIN [Concomitant]
  12. RANITIDINE [Concomitant]
  13. REGULAR INSULIN [Concomitant]
  14. GLYBURIDE [Concomitant]
  15. PHENYTOIN [Concomitant]
  16. LISINOPRIL [Concomitant]

REACTIONS (3)
  - FALL [None]
  - HEAD INJURY [None]
  - SUBARACHNOID HAEMORRHAGE [None]
